FAERS Safety Report 7482988-8 (Version None)
Quarter: 2011Q2

REPORT INFORMATION
  Report Type: 
  Country: None (occurrence: None)
  Receive Date: 20110516
  Receipt Date: 20110512
  Transmission Date: 20111010
  Serious: Yes (Hospitalization, Other)
  Sender: FDA-Public Use
  Company Number: SE-ABBOTT-10P-150-0619926-00

PATIENT
  Sex: Male

DRUGS (2)
  1. HUMIRA [Suspect]
     Indication: COLITIS ULCERATIVE
     Dosage: 2 X 40 MG  EVERY OTHER WEEK
     Route: 058
     Dates: start: 20090730, end: 20091105
  2. PANDAMERIX [Suspect]
     Indication: PRODUCT USED FOR UNKNOWN INDICATION

REACTIONS (8)
  - ABASIA [None]
  - DIARRHOEA HAEMORRHAGIC [None]
  - DEMYELINATION [None]
  - ENCEPHALITIS VIRAL [None]
  - MYELITIS [None]
  - C-REACTIVE PROTEIN INCREASED [None]
  - PYREXIA [None]
  - PARAPARESIS [None]
